FAERS Safety Report 4592058-4 (Version None)
Quarter: 2005Q1

REPORT INFORMATION
  Report Type: 
  Country: None (occurrence: None)
  Receive Date: 20050225
  Receipt Date: 20050222
  Transmission Date: 20050727
  Serious: Yes (Other)
  Sender: FDA-Public Use
  Company Number: NL-GLAXOSMITHKLINE-B0372902A

PATIENT
  Age: 33 Year
  Sex: Female

DRUGS (1)
  1. PAROXETINE HYDROCHLORIDE [Suspect]
     Indication: DEPRESSION
     Dosage: 20MG PER DAY
     Dates: start: 20041124, end: 20050131

REACTIONS (5)
  - DYSARTHRIA [None]
  - HYPOKINESIA [None]
  - JOINT STIFFNESS [None]
  - MUSCLE SPASMS [None]
  - PARKINSONISM [None]
